FAERS Safety Report 11404748 (Version 1)
Quarter: 2015Q3

REPORT INFORMATION
  Report Type: Spontaneous
  Country: DE (occurrence: DE)
  Receive Date: 20150821
  Receipt Date: 20150821
  Transmission Date: 20151125
  Serious: Yes (Hospitalization, Other)
  Sender: FDA-Public Use
  Company Number: DE-BAYER-2015-405190

PATIENT
  Age: 39 Year
  Sex: Male

DRUGS (1)
  1. ULTRAVIST [Suspect]
     Active Substance: IOPROMIDE
     Dosage: 100 ML, UNK

REACTIONS (4)
  - Urticaria [Recovered/Resolved]
  - Chills [Recovered/Resolved]
  - Cardiovascular disorder [Recovered/Resolved]
  - Cardiovascular disorder [Recovered/Resolved]

NARRATIVE: CASE EVENT DATE: 20150805
